FAERS Safety Report 9896832 (Version 1)
Quarter: 2014Q1

REPORT INFORMATION
  Report Type: Spontaneous
  Country: DE (occurrence: DE)
  Receive Date: 20140213
  Receipt Date: 20140213
  Transmission Date: 20141002
  Serious: Yes (Hospitalization)
  Sender: FDA-Public Use
  Company Number: DE-ABBVIE-14P-062-1200292-00

PATIENT
  Age: 39 Year
  Sex: Male

DRUGS (2)
  1. KALETRA [Suspect]
     Indication: HIV INFECTION
     Dates: start: 20010627
  2. KIVEXA [Concomitant]
     Indication: PRODUCT USED FOR UNKNOWN INDICATION

REACTIONS (4)
  - Cerebral infarction [Recovered/Resolved]
  - Cerebral infarction [Recovered/Resolved]
  - Carotid artery stenosis [Recovered/Resolved]
  - Renal artery stenosis [Recovered/Resolved]
